FAERS Safety Report 24618737 (Version 2)
Quarter: 2024Q4

REPORT INFORMATION
  Report Type: Spontaneous
  Country: JP (occurrence: JP)
  Receive Date: 20241114
  Receipt Date: 20241219
  Transmission Date: 20250115
  Serious: Yes (Other)
  Sender: MYLAN
  Company Number: JP-VIATRISJAPAN-2024M1100591AA

PATIENT

DRUGS (5)
  1. DOXAZOSIN [Suspect]
     Active Substance: DOXAZOSIN\DOXAZOSIN MESYLATE
     Indication: Cardiac failure
     Route: 064
  2. LABETALOL [Suspect]
     Active Substance: LABETALOL
     Indication: Cardiac failure
     Route: 064
  3. FUROSEMIDE [Suspect]
     Active Substance: FUROSEMIDE
     Indication: Cardiac failure
     Route: 064
  4. NICARDIPINE [Suspect]
     Active Substance: NICARDIPINE
     Indication: Product used for unknown indication
     Dosage: UNK
     Route: 064
  5. NICARDIPINE [Suspect]
     Active Substance: NICARDIPINE
     Dosage: GRADUAL INCREASE
     Route: 064

REACTIONS (4)
  - Failure to thrive [Unknown]
  - Pericardial effusion [Unknown]
  - Pleural effusion [Unknown]
  - Foetal exposure during pregnancy [Recovered/Resolved]
